FAERS Safety Report 8429483-7 (Version None)
Quarter: 2012Q2

REPORT INFORMATION
  Report Type: 
  Country: None (occurrence: None)
  Receive Date: 20120323
  Receipt Date: 20110920
  Transmission Date: 20120825
  Serious: Yes (Hospitalization)
  Sender: FDA-Public Use
  Company Number: 163-21880-11042993

PATIENT
  Age: 54 Year
  Sex: Male
  Weight: 110 kg

DRUGS (4)
  1. REVLIMID [Suspect]
     Indication: MULTIPLE MYELOMA
     Dosage: 5 MG, 1 IN 1 D, PO ; 15 MG, 1 IN 1 D, PO ; 20 MG, 2 IN 1 D, PO
     Route: 048
     Dates: start: 20110301
  2. REVLIMID [Suspect]
     Indication: MULTIPLE MYELOMA
     Dosage: 5 MG, 1 IN 1 D, PO ; 15 MG, 1 IN 1 D, PO ; 20 MG, 2 IN 1 D, PO
     Route: 048
     Dates: start: 20110215
  3. REVLIMID [Suspect]
     Indication: MULTIPLE MYELOMA
     Dosage: 5 MG, 1 IN 1 D, PO ; 15 MG, 1 IN 1 D, PO ; 20 MG, 2 IN 1 D, PO
     Route: 048
     Dates: start: 20110401, end: 20110914
  4. LISINOPRIL [Suspect]
     Indication: BLOOD PRESSURE
     Dosage: 20 MG, 1 IN 1 D, PO
     Route: 048
     Dates: start: 20100913, end: 20110913

REACTIONS (2)
  - HYPOVOLAEMIA [None]
  - RENAL FAILURE ACUTE [None]
